FAERS Safety Report 7933836-0 (Version None)
Quarter: 2011Q4

REPORT INFORMATION
  Report Type: 
  Country: None (occurrence: None)
  Receive Date: 20111122
  Receipt Date: 20111107
  Transmission Date: 20120403
  Serious: Yes (Hospitalization)
  Sender: FDA-Public Use
  Company Number: US-ROCHE-1012317

PATIENT

DRUGS (3)
  1. TIPIFARNIB [Suspect]
     Indication: NEOPLASM MALIGNANT
     Dosage: LAST DOSE PRIOR TO SAE: 05 NOVEMBER 2001, EVERY 12 HOURLY FOR 3 WEEKS, EVERY 4 WEEKS
     Route: 048
     Dates: start: 20011016
  2. HERCEPTIN [Suspect]
     Dosage: MAINTENANCE DOSE, OVER 30 MINUTES EVERY WEEK ON DAY 1 FOR 4 WEEKS, EVERY 4 WEEKLY
     Route: 042
  3. HERCEPTIN [Suspect]
     Indication: NEOPLASM MALIGNANT
     Dosage: LOADING DOSE, ON DAY 1 OF CYCLE 1, OVER 90 MINUTES
     Route: 042
     Dates: start: 20011016

REACTIONS (1)
  - ILEUS [None]
